FAERS Safety Report 5551234-4 (Version None)
Quarter: 2007Q4

REPORT INFORMATION
  Report Type: 
  Country: None (occurrence: None)
  Receive Date: 20071212
  Receipt Date: 20071203
  Transmission Date: 20080405
  Serious: Yes (Other)
  Sender: FDA-Public Use
  Company Number: HQWYE939112FEB04

PATIENT
  Age: 48 Year
  Sex: Female

DRUGS (1)
  1. SIROLIMUS [Suspect]
     Indication: FOCAL SEGMENTAL GLOMERULOSCLEROSIS
     Dosage: 6 MG DAY 1; 4 MG/D TO BE TITRATED TO MAINTAIN LEVELS BETWEEN 5-15 NG/ML X FIRST 4 MONTHS OF THERAPY
     Route: 048
     Dates: start: 20030501, end: 20030901

REACTIONS (2)
  - HYPERTRIGLYCERIDAEMIA [None]
  - PROTEINURIA [None]
